FAERS Safety Report 14294075 (Version 1)
Quarter: 2017Q4

REPORT INFORMATION
  Report Type: Spontaneous
  Country: FI (occurrence: FI)
  Receive Date: 20171217
  Receipt Date: 20171217
  Transmission Date: 20180321
  Serious: Yes (Death)
  Sender: FDA-Public Use
  Company Number: FI-CIPLA LTD.-2017FI24528

PATIENT

DRUGS (7)
  1. SODIUM VALPROATE [Suspect]
     Active Substance: VALPROATE SODIUM
     Indication: SEIZURE
     Dosage: UNK
     Route: 065
  2. CLONAZEPAM. [Suspect]
     Active Substance: CLONAZEPAM
     Indication: SEIZURE
     Dosage: UNK
     Route: 065
  3. TOPIRAMATE. [Suspect]
     Active Substance: TOPIRAMATE
     Indication: SEIZURE
     Dosage: UNK
     Route: 065
  4. MIDAZOLAM [Suspect]
     Active Substance: MIDAZOLAM HYDROCHLORIDE
     Indication: SEIZURE
     Dosage: UNK
     Route: 065
  5. THIOPENTAL [Suspect]
     Active Substance: THIOPENTAL
     Indication: SEIZURE
     Dosage: UNK
     Route: 065
  6. FOSPHENYTOIN [Suspect]
     Active Substance: FOSPHENYTOIN\FOSPHENYTOIN SODIUM
     Indication: SEIZURE
     Dosage: UNK
     Route: 065
  7. GABAPENTIN. [Suspect]
     Active Substance: GABAPENTIN
     Indication: SEIZURE
     Dosage: UNK
     Route: 065

REACTIONS (11)
  - Somnolence [Fatal]
  - Alanine aminotransferase increased [Fatal]
  - Blood lactic acid increased [Fatal]
  - Blood alkaline phosphatase increased [Fatal]
  - Coma hepatic [Fatal]
  - Drug resistance [Unknown]
  - Hepatic failure [Fatal]
  - Bilirubin conjugated increased [Fatal]
  - Ammonia increased [Fatal]
  - Blood bilirubin increased [Fatal]
  - International normalised ratio increased [Fatal]
